FAERS Safety Report 13689354 (Version 1)
Quarter: 2017Q2

REPORT INFORMATION
  Report Type: Spontaneous
  Country: CH (occurrence: KR)
  Receive Date: 20170626
  Receipt Date: 20170626
  Transmission Date: 20170830
  Serious: Yes (Death, Hospitalization)
  Sender: FDA-Public Use
  Company Number: CH-LPDUSPRD-20170777

PATIENT

DRUGS (2)
  1. FERINJECT [Suspect]
     Active Substance: FERRIC CARBOXYMALTOSE
     Dosage: UNKNOWN
     Route: 042
  2. VENOFER [Suspect]
     Active Substance: IRON SUCROSE
     Dosage: UNKNOWN
     Route: 042

REACTIONS (2)
  - Infection [Fatal]
  - Cardiovascular disorder [Fatal]
